FAERS Safety Report 21713996 (Version 1)
Quarter: 2022Q4

REPORT INFORMATION
  Report Type: Spontaneous
  Country: US (occurrence: None)
  Receive Date: 20221209
  Receipt Date: 20221209
  Transmission Date: 20230112
  Serious: Yes (Hospitalization)
  Sender: FDA-Public Use
  Company Number: None

PATIENT
  Age: 73 Year
  Sex: Male
  Weight: 103.87 kg

DRUGS (2)
  1. HYDRALAZINE HYDROCHLORIDE [Suspect]
     Active Substance: HYDRALAZINE HYDROCHLORIDE
     Indication: Hypertension
     Dates: start: 20220722, end: 20220723
  2. LISINOPRIL [Suspect]
     Active Substance: LISINOPRIL
     Indication: Hypertension
     Dosage: FREQUENCY : DAILY;?
     Route: 048
     Dates: start: 20121212, end: 20220723

REACTIONS (10)
  - Abdominal pain [None]
  - Nausea [None]
  - Nephrolithiasis [None]
  - Hydronephrosis [None]
  - Acute kidney injury [None]
  - Blood pressure increased [None]
  - Swollen tongue [None]
  - Dysarthria [None]
  - Stridor [None]
  - Angioedema [None]

NARRATIVE: CASE EVENT DATE: 20220723
